FAERS Safety Report 15179436 (Version 1)
Quarter: 2018Q3

REPORT INFORMATION
  Report Type: Spontaneous
  Country: US (occurrence: US)
  Receive Date: 20180723
  Receipt Date: 20180723
  Transmission Date: 20181010
  Serious: No
  Sender: FDA-Public Use
  Company Number: US-CIPLA LTD.-2017US19382

PATIENT

DRUGS (4)
  1. ZONISAMIDE. [Suspect]
     Active Substance: ZONISAMIDE
     Indication: SEIZURE
     Dosage: 100 MG,1 CAPSULE ONCE AT NIGHT
     Route: 065
     Dates: start: 20170913, end: 20170919
  2. ZONISAMIDE. [Suspect]
     Active Substance: ZONISAMIDE
     Dosage: 100 MG, 3 CAPSULES ONCE AT NIGHT
     Route: 065
     Dates: start: 20170927, end: 20171003
  3. ZONISAMIDE. [Suspect]
     Active Substance: ZONISAMIDE
     Dosage: 100 MG,2 CAPSULES ONCE AT NIGHT
     Route: 065
     Dates: start: 20170920, end: 20170926
  4. ZONISAMIDE. [Suspect]
     Active Substance: ZONISAMIDE
     Dosage: 100 MG,4 CAPSULES ONCE AT NIGHT
     Route: 065
     Dates: start: 20171004

REACTIONS (2)
  - Headache [Recovering/Resolving]
  - Fatigue [Unknown]

NARRATIVE: CASE EVENT DATE: 201709
